FAERS Safety Report 8316568-9 (Version None)
Quarter: 2012Q2

REPORT INFORMATION
  Report Type: 
  Country: None (occurrence: None)
  Receive Date: 20120425
  Receipt Date: 20120425
  Transmission Date: 20120825
  Serious: Yes (Other)
  Sender: FDA-Public Use
  Company Number: None

PATIENT
  Sex: Female
  Weight: 82.5547 kg

DRUGS (2)
  1. BUPROPION HYDROCHLORIDE (WELLBUTRIN XL) [Suspect]
     Indication: POST-TRAUMATIC STRESS DISORDER
     Dosage: 300MG QAM PO
     Route: 048
     Dates: start: 20040101, end: 20120112
  2. BUPROPION HYDROCHLORIDE (WELLBUTRIN XL) [Suspect]
     Indication: DEPRESSION
     Dosage: 150 MG QAM PO
     Route: 048
     Dates: start: 20040101, end: 20120112

REACTIONS (4)
  - ENERGY INCREASED [None]
  - INSOMNIA [None]
  - DEPRESSED MOOD [None]
  - PRODUCT SUBSTITUTION ISSUE [None]
